FAERS Safety Report 4696124-4 (Version None)
Quarter: 2005Q2

REPORT INFORMATION
  Report Type: 
  Country: None (occurrence: None)
  Receive Date: 20050620
  Receipt Date: 20050606
  Transmission Date: 20051028
  Serious: Yes (Hospitalization)
  Sender: FDA-Public Use
  Company Number: 2005078402

PATIENT
  Age: 70 Year
  Sex: Male

DRUGS (4)
  1. ZOLOFT [Suspect]
     Indication: ILL-DEFINED DISORDER
  2. PANTOPRAZOLE SODIUM [Suspect]
     Indication: ILL-DEFINED DISORDER
  3. STELAZINE [Suspect]
     Indication: ILL-DEFINED DISORDER
  4. ZYLOPRIM [Concomitant]

REACTIONS (3)
  - GRANULOMA [None]
  - SPLENOMEGALY [None]
  - THROMBOCYTOPENIA [None]
